FAERS Safety Report 19270551 (Version 1)
Quarter: 2021Q2

REPORT INFORMATION
  Report Type: Spontaneous
  Country: NL (occurrence: IT)
  Receive Date: 20210518
  Receipt Date: 20210518
  Transmission Date: 20210717
  Serious: Yes (Death, Other)
  Sender: FDA-Public Use
  Company Number: IT-FRESENIUS KABI-FK202104871

PATIENT
  Age: 75 Year
  Sex: Male

DRUGS (3)
  1. RAMUCIRUMAB [Suspect]
     Active Substance: RAMUCIRUMAB
     Dosage: 8 MG/KG, OTHER
     Route: 042
     Dates: start: 20190213, end: 20190424
  2. RAMUCIRUMAB [Suspect]
     Active Substance: RAMUCIRUMAB
     Indication: ADENOCARCINOMA GASTRIC
     Dosage: TWICE A WEEK
     Route: 042
     Dates: start: 20190901
  3. PACLITAXEL (MANUFACTURER UNKNOWN) [Suspect]
     Active Substance: PACLITAXEL
     Indication: ADENOCARCINOMA GASTRIC
     Dosage: 80 MG, OTHER
     Route: 042
     Dates: start: 20190213, end: 20190424

REACTIONS (7)
  - Tumour marker increased [Unknown]
  - Death [Fatal]
  - Neutropenia [Unknown]
  - General physical health deterioration [Unknown]
  - Hypertension [Unknown]
  - Anaemia [Unknown]
  - Neuropathy peripheral [Unknown]

NARRATIVE: CASE EVENT DATE: 202009
